FAERS Safety Report 9903190 (Version 1)
Quarter: 2014Q1

REPORT INFORMATION
  Report Type: Spontaneous
  Country: US (occurrence: US)
  Receive Date: 20140217
  Receipt Date: 20140217
  Transmission Date: 20141002
  Serious: No
  Sender: FDA-Public Use
  Company Number: US-ASTRAZENECA-2013SE82094

PATIENT
  Age: 59 Year
  Sex: Female
  Weight: 69.4 kg

DRUGS (10)
  1. ATENOLOL [Suspect]
     Indication: ATRIAL FIBRILLATION
     Route: 048
  2. CRESTOR [Suspect]
     Indication: BLOOD CHOLESTEROL INCREASED
     Route: 048
     Dates: start: 2010
  3. CRESTOR [Suspect]
     Indication: BLOOD TRIGLYCERIDES INCREASED
     Route: 048
     Dates: start: 2010
  4. SYNTHROID [Concomitant]
     Indication: BASEDOW^S DISEASE
     Dosage: NOT REPORTED NR
     Route: 048
  5. LEXAPRO [Concomitant]
     Indication: DEPRESSION
     Dosage: NOT REPORTED NR
     Route: 048
  6. LEXAPRO [Concomitant]
     Indication: ANXIETY
     Dosage: NOT REPORTED NR
     Route: 048
  7. FOLIC ACID [Concomitant]
     Indication: SUPPLEMENTATION THERAPY
     Dosage: NOT REPORTED NR
     Route: 048
  8. VITAMIN D3 [Concomitant]
     Indication: SUPPLEMENTATION THERAPY
     Dosage: NOT REPORTED NR
     Route: 048
  9. TRANZINE [Concomitant]
     Indication: SLEEP DISORDER
     Dosage: NOT REPORTED NR
     Route: 048
  10. LOVAZA [Concomitant]
     Indication: BLOOD TRIGLYCERIDES INCREASED
     Dosage: 2 AT BEDTIME HS
     Route: 048

REACTIONS (14)
  - Abdominal distension [Unknown]
  - Gastric mucosal lesion [Unknown]
  - Reflux gastritis [Unknown]
  - Gastric disorder [Unknown]
  - Intervertebral disc disorder [Unknown]
  - Nerve compression [Unknown]
  - Back pain [Unknown]
  - Insulin resistance [Unknown]
  - Blood triglycerides increased [Unknown]
  - Blood cholesterol increased [Unknown]
  - Nausea [Unknown]
  - Vomiting [Unknown]
  - Atrial fibrillation [Unknown]
  - Drug ineffective [Unknown]
